FAERS Safety Report 9783064 (Version 2)
Quarter: 2014Q1

REPORT INFORMATION
  Report Type: Spontaneous
  Country: US (occurrence: US)
  Receive Date: 20131226
  Receipt Date: 20140324
  Transmission Date: 20141002
  Serious: No
  Sender: FDA-Public Use
  Company Number: US-GILEAD-2013-0090564

PATIENT
  Sex: Male

DRUGS (3)
  1. LETAIRIS [Suspect]
     Indication: PULMONARY HYPERTENSION
     Dosage: 20 MG, QD
     Route: 048
     Dates: start: 20131218, end: 20131218
  2. LETAIRIS [Suspect]
     Indication: SARCOIDOSIS
     Dosage: 10 MG, QD
     Route: 048
     Dates: start: 20131017
  3. REVATIO [Concomitant]

REACTIONS (1)
  - Accidental overdose [Unknown]
